FAERS Safety Report 9917563 (Version 3)
Quarter: 2014Q1

REPORT INFORMATION
  Report Type: Spontaneous
  Country: US (occurrence: US)
  Receive Date: 20140221
  Receipt Date: 20140327
  Transmission Date: 20141002
  Serious: Yes (Other)
  Sender: FDA-Public Use
  Company Number: CHPA2014US002873

PATIENT
  Age: 40 Year
  Sex: Female

DRUGS (2)
  1. EX-LAX MAX STR LAX PILLS SENNA [Suspect]
     Indication: CONSTIPATION
     Dosage: UNK
     Route: 048
  2. EX-LAX REG STR LAX PILLS SENNA [Suspect]
     Indication: CONSTIPATION
     Dosage: UNK
     Route: 048

REACTIONS (3)
  - Skin ulcer [Unknown]
  - Malaise [Unknown]
  - Vomiting [Recovered/Resolved]
